FAERS Safety Report 6809514-8 (Version None)
Quarter: 2010Q2

REPORT INFORMATION
  Report Type: 
  Country: None (occurrence: None)
  Receive Date: 20100630
  Receipt Date: 20100628
  Transmission Date: 20101027
  Serious: Yes (Hospitalization)
  Sender: FDA-Public Use
  Company Number: FR-BRISTOL-MYERS SQUIBB COMPANY-15167919

PATIENT
  Age: 84 Year
  Sex: Female

DRUGS (4)
  1. COAPROVEL FILM-COATED TABS 300/12.5 MG [Suspect]
     Dosage: 1 DF = 300/12.5 MG
     Route: 048
     Dates: end: 20100528
  2. SERESTA [Concomitant]
  3. LANSOYL [Concomitant]
  4. IMOVANE [Concomitant]

REACTIONS (5)
  - FALL [None]
  - GENERAL PHYSICAL HEALTH DETERIORATION [None]
  - HEAD INJURY [None]
  - HYPONATRAEMIA [None]
  - LOSS OF CONSCIOUSNESS [None]
